FAERS Safety Report 5399873-8 (Version None)
Quarter: 2007Q3

REPORT INFORMATION
  Report Type: 
  Country: None (occurrence: None)
  Receive Date: 20070730
  Receipt Date: 20070720
  Transmission Date: 20080115
  Serious: Yes (Hospitalization)
  Sender: FDA-Public Use
  Company Number: PHBS2007JP10497

PATIENT
  Age: 37 Year
  Sex: Female
  Weight: 83 kg

DRUGS (6)
  1. SANDOSTATIN LAR [Suspect]
     Indication: ACROMEGALY
     Dosage: 30 MG, ONCE/SINGLE
     Route: 030
     Dates: start: 20060105, end: 20060105
  2. SANDOSTATIN LAR [Suspect]
     Dosage: 10 MG/D
     Route: 030
     Dates: start: 20060404, end: 20060404
  3. SANDOSTATIN LAR [Suspect]
     Dosage: 10 MG, ONCE/SINGLE
     Route: 030
     Dates: start: 20060427, end: 20060427
  4. SANDOSTATIN LAR [Suspect]
     Dosage: 10 MG, ONCE/SINGLE
     Route: 030
     Dates: start: 20060601, end: 20060601
  5. SANDOSTATIN LAR [Suspect]
     Dosage: 10 MG, ONCE/SINGLE
     Route: 030
     Dates: start: 20060629, end: 20060629
  6. SANDOSTATIN LAR [Suspect]
     Dosage: 10 MG, ONCE/SINGLE
     Route: 030
     Dates: start: 20060801, end: 20060801

REACTIONS (7)
  - CAESAREAN SECTION [None]
  - CEPHALO-PELVIC DISPROPORTION [None]
  - DRUG EXPOSURE DURING PREGNANCY [None]
  - FOETAL DISTRESS SYNDROME [None]
  - INDUCED LABOUR [None]
  - NORMAL NEWBORN [None]
  - PREGNANCY INDUCED HYPERTENSION [None]
